FAERS Safety Report 9232735 (Version 1)
Quarter: 2013Q2

REPORT INFORMATION
  Report Type: Spontaneous
  Country: US (occurrence: None)
  Receive Date: 20130415
  Receipt Date: 20130415
  Transmission Date: 20140414
  Serious: Yes (Hospitalization, Other)
  Sender: FDA-Public Use
  Company Number: None

PATIENT
  Sex: Male
  Weight: 78.02 kg

DRUGS (2)
  1. PREDNISONE [Suspect]
     Indication: HERPES ZOSTER
     Route: 048
     Dates: start: 20131217, end: 20131219
  2. VALACYCLOVIR [Suspect]
     Indication: HERPES ZOSTER
     Route: 048
     Dates: start: 20131217, end: 20131219

REACTIONS (5)
  - Mental status changes [None]
  - Asthenia [None]
  - Pneumonia [None]
  - Bronchitis [None]
  - Red blood cell count decreased [None]
